FAERS Safety Report 17180915 (Version 2)
Quarter: 2020Q1

REPORT INFORMATION
  Report Type: Report from Study
  Country: DE (occurrence: DE)
  Receive Date: 20191220
  Receipt Date: 20200303
  Transmission Date: 20200409
  Serious: Yes (Hospitalization)
  Sender: FDA-Public Use
  Company Number: DE-ROCHE-1817620

PATIENT
  Age: 62 Year
  Sex: Female

DRUGS (10)
  1. METHOTREXATE. [Suspect]
     Active Substance: METHOTREXATE
     Indication: RHEUMATOID ARTHRITIS
     Route: 065
     Dates: end: 2016
  2. TOCILIZUMAB. [Suspect]
     Active Substance: TOCILIZUMAB
     Indication: RHEUMATOID ARTHRITIS
     Route: 058
     Dates: start: 20140721, end: 20160601
  3. TOCILIZUMAB. [Suspect]
     Active Substance: TOCILIZUMAB
     Route: 058
     Dates: start: 201705, end: 20180101
  4. TOCILIZUMAB. [Suspect]
     Active Substance: TOCILIZUMAB
     Route: 058
     Dates: start: 20180709, end: 20180901
  5. VOLTAREN [DICLOFENAC] [Concomitant]
     Active Substance: DICLOFENAC SODIUM
     Route: 065
  6. VOLTAREN [DICLOFENAC] [Concomitant]
     Active Substance: DICLOFENAC SODIUM
     Route: 065
  7. VOLTAREN [DICLOFENAC] [Concomitant]
     Active Substance: DICLOFENAC SODIUM
     Route: 065
  8. TOCILIZUMAB. [Suspect]
     Active Substance: TOCILIZUMAB
     Route: 058
     Dates: start: 20181231, end: 202001
  9. ARCOXIA [Concomitant]
     Active Substance: ETORICOXIB
     Dosage: MORNING AND EVENING
     Route: 065
  10. TOCILIZUMAB. [Suspect]
     Active Substance: TOCILIZUMAB
     Route: 058
     Dates: start: 201609, end: 201611

REACTIONS (10)
  - Therapeutic product effect decreased [Unknown]
  - Intervertebral disc protrusion [Not Recovered/Not Resolved]
  - Arthralgia [Not Recovered/Not Resolved]
  - Pain in extremity [Not Recovered/Not Resolved]
  - Meteoropathy [Not Recovered/Not Resolved]
  - Inflammatory marker increased [Not Recovered/Not Resolved]
  - Rheumatoid nodule [Recovering/Resolving]
  - Musculoskeletal pain [Not Recovered/Not Resolved]
  - Arthritis [Not Recovered/Not Resolved]
  - Oedema peripheral [Not Recovered/Not Resolved]

NARRATIVE: CASE EVENT DATE: 20160601
